FAERS Safety Report 8163475-0 (Version None)
Quarter: 2012Q1

REPORT INFORMATION
  Report Type: 
  Country: None (occurrence: None)
  Receive Date: 20120224
  Receipt Date: 20120215
  Transmission Date: 20120608
  Serious: Yes (Other)
  Sender: FDA-Public Use
  Company Number: US-JNJFOC-20120208342

PATIENT
  Sex: Male
  Weight: 66.68 kg

DRUGS (6)
  1. REMICADE [Suspect]
     Indication: CROHN'S DISEASE
     Route: 042
     Dates: start: 20110701
  2. REMICADE [Suspect]
     Route: 042
     Dates: end: 20110701
  3. COUMADIN [Concomitant]
     Indication: ANTICOAGULANT THERAPY
     Dosage: 5 MG  5 DAYS A WEEK
     Dates: start: 20050101
  4. LIPITOR [Concomitant]
     Indication: BLOOD CHOLESTEROL
     Route: 048
     Dates: start: 20060101
  5. ASACOL [Concomitant]
     Indication: CROHN'S DISEASE
     Route: 048
     Dates: start: 20020101
  6. COUMADIN [Concomitant]
     Dosage: 7.5 MG TWO DAYS A WEEK

REACTIONS (5)
  - PROSTATOMEGALY [None]
  - CEREBROVASCULAR ACCIDENT [None]
  - PNEUMONIA [None]
  - THYROID NEOPLASM [None]
  - CROHN'S DISEASE [None]
